FAERS Safety Report 20138790 (Version 2)
Quarter: 2021Q4

REPORT INFORMATION
  Report Type: Spontaneous
  Country: PT (occurrence: PT)
  Receive Date: 20211202
  Receipt Date: 20211209
  Transmission Date: 20220303
  Serious: Yes (Death, Life-Threatening, Hospitalization, Other)
  Sender: FDA-Public Use
  Company Number: PT-MLMSERVICE-20211122-3223910-1

PATIENT
  Age: 65 Year
  Sex: Male

DRUGS (5)
  1. METHYLPREDNISOLONE [Suspect]
     Active Substance: METHYLPREDNISOLONE
     Indication: Immunosuppressant drug therapy
     Dosage: UNK
  2. PREDNISOLONE [Suspect]
     Active Substance: PREDNISOLONE
     Indication: Immunosuppressant drug therapy
     Dosage: UNK
  3. THYMOGLOBULIN [Suspect]
     Active Substance: LAPINE T-LYMPHOCYTE IMMUNE GLOBULIN
     Indication: Immunosuppressant drug therapy
     Dosage: 2.9 MG/KG
  4. THYMOGLOBULIN [Suspect]
     Active Substance: LAPINE T-LYMPHOCYTE IMMUNE GLOBULIN
     Dosage: 150 MG
  5. TACROLIMUS [Suspect]
     Active Substance: TACROLIMUS
     Indication: Immunosuppressant drug therapy
     Dosage: UNK

REACTIONS (15)
  - Perinephric abscess [Fatal]
  - Septic shock [Fatal]
  - Enterococcal infection [Fatal]
  - Candida infection [Fatal]
  - Fournier^s gangrene [Fatal]
  - Pyrexia [Fatal]
  - Anaemia [Fatal]
  - Proteus infection [Fatal]
  - Klebsiella infection [Fatal]
  - Hyperlactacidaemia [Fatal]
  - Fournier^s gangrene [Fatal]
  - Multiple organ dysfunction syndrome [Recovering/Resolving]
  - Hypotension [Recovering/Resolving]
  - Escherichia infection [Recovering/Resolving]
  - Morganella infection [Recovering/Resolving]
